FAERS Safety Report 4924457-2 (Version None)
Quarter: 2006Q1

REPORT INFORMATION
  Report Type: 
  Country: None (occurrence: None)
  Receive Date: 20060227
  Receipt Date: 20060216
  Transmission Date: 20060701
  Serious: Yes (Hospitalization, Other)
  Sender: FDA-Public Use
  Company Number: FR-BRISTOL-MYERS SQUIBB COMPANY-13290374

PATIENT
  Age: 82 Year
  Sex: Female

DRUGS (6)
  1. VASTEN TABS 40 MG [Suspect]
     Route: 048
  2. SERESTA [Suspect]
     Dosage: DOSAGE FORM = 1.8 U
     Route: 048
  3. KARDEGIC [Suspect]
     Route: 048
  4. PARIET [Suspect]
     Route: 048
  5. ALDACTAZINE [Suspect]
     Route: 048
  6. TENORMIN [Suspect]
     Route: 048

REACTIONS (2)
  - CARPAL TUNNEL DECOMPRESSION [None]
  - PEMPHIGOID [None]
